FAERS Safety Report 18855857 (Version 1)
Quarter: 2021Q1

REPORT INFORMATION
  Report Type: Spontaneous
  Country: CZ (occurrence: CZ)
  Receive Date: 20210206
  Receipt Date: 20210206
  Transmission Date: 20210420
  Serious: Yes (Death, Other)
  Sender: FDA-Public Use
  Company Number: CZ-AUROBINDO-AUR-APL-2021-005245

PATIENT
  Age: 61 Year
  Sex: Female

DRUGS (2)
  1. IMURAN [Suspect]
     Active Substance: AZATHIOPRINE
     Indication: COLITIS ULCERATIVE
     Dosage: UNK
     Route: 065
     Dates: start: 2008, end: 2015
  2. MELPHALAN. [Suspect]
     Active Substance: MELPHALAN
     Indication: DIFFUSE LARGE B-CELL LYMPHOMA
     Dosage: UNK
     Route: 065

REACTIONS (3)
  - Central nervous system lymphoma [Fatal]
  - Off label use [Unknown]
  - Drug ineffective for unapproved indication [Unknown]
